FAERS Safety Report 9052636 (Version 7)
Quarter: 2013Q3

REPORT INFORMATION
  Report Type: Report from Study
  Country: JP (occurrence: JP)
  Receive Date: 20130207
  Receipt Date: 20130813
  Transmission Date: 20140515
  Serious: Yes (Hospitalization)
  Sender: FDA-Public Use
  Company Number: JP-SANOFI-AVENTIS-2013SA006873

PATIENT
  Age: 41 Year
  Sex: Female
  Weight: 69.9 kg

DRUGS (18)
  1. DOCETAXEL [Suspect]
     Indication: BREAST CANCER
     Route: 042
     Dates: start: 20110629
  2. TRASTUZUMAB [Suspect]
     Indication: BREAST CANCER
     Route: 042
     Dates: start: 20110629
  3. HYALEIN [Concomitant]
     Indication: PUNCTATE KERATITIS
     Dates: start: 20120125
  4. DEXAMETHASONE [Concomitant]
     Dates: start: 20110630
  5. DEXAMETHASONE [Concomitant]
     Dates: start: 20110729
  6. SELBEX [Concomitant]
     Dates: start: 20110630
  7. SELBEX [Concomitant]
     Dates: start: 20110729
  8. KYTRIL [Concomitant]
     Dates: start: 20110629
  9. KYTRIL [Concomitant]
     Dates: start: 20110729
  10. MAGLAX [Concomitant]
     Indication: CONSTIPATION
     Dates: start: 20110701
  11. SENNOSIDES A AND B [Concomitant]
     Indication: CONSTIPATION
     Dates: start: 20110702
  12. LASIX [Concomitant]
     Indication: OEDEMA
     Dates: start: 20110921
  13. ALDACTONE [Concomitant]
     Indication: OEDEMA
     Dates: start: 20110921
  14. CRAVIT [Concomitant]
     Indication: NAIL INFECTION
     Dates: start: 20120711
  15. GENTAMICIN [Concomitant]
     Indication: NAIL INFECTION
     Dates: start: 20120711
  16. DEXART [Concomitant]
     Dates: start: 20110629
  17. DEXART [Concomitant]
     Dates: start: 20110729
  18. PETROLATUM [Concomitant]

REACTIONS (1)
  - Rectal haemorrhage [Recovered/Resolved]
